FAERS Safety Report 19869903 (Version 2)
Quarter: 2021Q4

REPORT INFORMATION
  Report Type: Spontaneous
  Country: JP (occurrence: JP)
  Receive Date: 20210923
  Receipt Date: 20211005
  Transmission Date: 20220303
  Serious: Yes (Other)
  Sender: FDA-Public Use
  Company Number: JP-ORGANON-O2109JPN000256J

PATIENT
  Age: 86 Year
  Sex: Male

DRUGS (12)
  1. DESLORATADINE [Suspect]
     Active Substance: DESLORATADINE
     Dosage: 5 GRAM,30 TIMES PER DAY
     Route: 048
     Dates: start: 20210601
  2. DESLORATADINE [Suspect]
     Active Substance: DESLORATADINE
     Dosage: 5 MILLIGRAM,91 TIMES PER DAY
     Route: 048
     Dates: start: 20210901
  3. SARPOGRELATE HYDROCHLORIDE [Concomitant]
     Active Substance: SARPOGRELATE HYDROCHLORIDE
     Dosage: 100 MILLIGRAM,273 TIMES PER DAY
     Route: 048
     Dates: start: 20210901
  4. ATORVASTATIN OD [Concomitant]
     Dosage: 10 MILLIGRAM,56TIMES PER DAY
     Route: 048
     Dates: start: 20210901
  5. FEBUXOSTAT [Concomitant]
     Active Substance: FEBUXOSTAT
     Dosage: 20 MILLIGRAM,56TIMES PER DAY
     Route: 048
     Dates: start: 20210901
  6. BISOPROLOL FUMARATE [Concomitant]
     Active Substance: BISOPROLOL FUMARATE
     Dosage: 1.25 MILLIGRAM,56TIMES PER DAY
     Route: 048
     Dates: start: 20210901
  7. SPIRONOLACTONE [Concomitant]
     Active Substance: SPIRONOLACTONE
     Dosage: 2.5 MILLIGRAM,56TIMES PER DAY
     Route: 048
     Dates: start: 20210901
  8. SAMSCA OD [Concomitant]
     Dosage: 7.5 MILLIGRAM,28TIMES PER DAY
     Route: 048
     Dates: start: 20210901
  9. LINAGLIPTIN [Concomitant]
     Active Substance: LINAGLIPTIN
     Dosage: 5 MILLIGRAM,56TIMES PER DAY
     Route: 048
     Dates: start: 20210901
  10. AMITIZA [Concomitant]
     Active Substance: LUBIPROSTONE
     Dosage: 12 MICROGRAM,112TIMES PER DAY
     Route: 048
     Dates: start: 20210901
  11. ELIQUIS [Concomitant]
     Active Substance: APIXABAN
     Dosage: 2.5 MILLIGRAM,56TIMES PER DAY
     Route: 048
     Dates: start: 20210901
  12. LECICARBON [SODIUM BICARBONATE;SODIUM PHOSPHATE MONOBASIC (ANHYDROUS)] [Concomitant]
     Dosage: 1 ARBITRARY UNITS,56TIMES PER DAY
     Route: 065
     Dates: start: 20210901

REACTIONS (3)
  - Hallucination [Unknown]
  - Overdose [Unknown]
  - Overdose [Unknown]

NARRATIVE: CASE EVENT DATE: 20210601
